FAERS Safety Report 10013963 (Version 1)
Quarter: 2014Q1

REPORT INFORMATION
  Report Type: Spontaneous
  Country: GB (occurrence: GB)
  Receive Date: 20140316
  Receipt Date: 20140316
  Transmission Date: 20141002
  Serious: Yes (Other)
  Sender: FDA-Public Use
  Company Number: GB-BRISTOL-MYERS SQUIBB COMPANY-20410270

PATIENT
  Age: 1 Day
  Sex: Male
  Weight: 3.99 kg

DRUGS (5)
  1. ARIPIPRAZOLE [Suspect]
     Route: 064
  2. DULOXETINE HCL [Suspect]
     Route: 064
  3. QUETIAPINE [Suspect]
     Route: 064
  4. ZOPICLONE [Suspect]
     Route: 064
  5. ZYPREXA [Suspect]
     Route: 064

REACTIONS (4)
  - Cleft palate [Unknown]
  - High arched palate [Unknown]
  - Feeding disorder neonatal [Recovered/Resolved]
  - Foetal exposure during pregnancy [Unknown]
